FAERS Safety Report 9640434 (Version 1)
Quarter: 2013Q4

REPORT INFORMATION
  Report Type: Spontaneous
  Country: JP (occurrence: JP)
  Receive Date: 20131023
  Receipt Date: 20131023
  Transmission Date: 20140711
  Serious: Yes (Other)
  Sender: FDA-Public Use
  Company Number: JP-AMGEN-JPNSP2013074276

PATIENT
  Sex: Female

DRUGS (1)
  1. ENBREL [Suspect]
     Indication: PRODUCT USED FOR UNKNOWN INDICATION
     Dosage: 50 MG OF UNKNOWN FREQUENCY
     Route: 058

REACTIONS (5)
  - Pruritus [Unknown]
  - Nasal dryness [Unknown]
  - Eczema [Unknown]
  - Injection site haemorrhage [Unknown]
  - Otitis media [Unknown]
